FAERS Safety Report 11437182 (Version 1)
Quarter: 2015Q3

REPORT INFORMATION
  Report Type: Spontaneous
  Country: US (occurrence: US)
  Receive Date: 20150821
  Receipt Date: 20150821
  Transmission Date: 20151125
  Serious: No
  Sender: FDA-Public Use
  Company Number: US-ELI_LILLY_AND_COMPANY-US200703001978

PATIENT
  Age: 42 Year
  Sex: Female

DRUGS (13)
  1. ZANAFLEX [Concomitant]
     Active Substance: TIZANIDINE HYDROCHLORIDE
     Dosage: 8 MG, EACH EVENING
  2. ZONEGRAN [Concomitant]
     Active Substance: ZONISAMIDE
     Dosage: 100 MG, 2/D
  3. THYROID [Concomitant]
     Active Substance: LEVOTHYROXINE\LIOTHYRONINE
     Dosage: 30 MG, DAILY (1/D)
  4. PROVIGIL [Concomitant]
     Active Substance: MODAFINIL
     Indication: NARCOLEPSY
     Dosage: 200 MG, DAILY (1/D)
  5. AMBIEN [Concomitant]
     Active Substance: ZOLPIDEM TARTRATE
     Dosage: 6.25 MG, EACH EVENING
  6. ATARAX [Concomitant]
     Active Substance: HYDROXYZINE\HYDROXYZINE HYDROCHLORIDE
     Dosage: 25 MG, EACH EVENING
  7. PROZAC [Concomitant]
     Active Substance: FLUOXETINE HYDROCHLORIDE
     Indication: DEPRESSION
     Dosage: UNK MG, UNK
  8. TRIMETHOPRIM. [Concomitant]
     Active Substance: TRIMETHOPRIM
     Dosage: 100 MG, DAILY (1/D)
  9. CYMBALTA [Suspect]
     Active Substance: DULOXETINE HYDROCHLORIDE
     Indication: DEPRESSION
     Dosage: 60 MG, DAILY (1/D)
  10. SANCTURA [Concomitant]
     Active Substance: TROSPIUM CHLORIDE
     Dosage: 20 MG, UNK
  11. CLIMARA [Concomitant]
     Active Substance: ESTRADIOL
  12. CYMBALTA [Suspect]
     Active Substance: DULOXETINE HYDROCHLORIDE
     Dosage: 60 MG, 2/D
     Dates: start: 20070222, end: 20070306
  13. CYMBALTA [Suspect]
     Active Substance: DULOXETINE HYDROCHLORIDE
     Dosage: 60 MG, DAILY (1/D)
     Dates: start: 20070308

REACTIONS (7)
  - Myalgia [Recovering/Resolving]
  - Muscle spasms [Unknown]
  - Night sweats [Unknown]
  - Migraine [Unknown]
  - Cystoscopy [Unknown]
  - Gait disturbance [Recovered/Resolved]
  - Foot deformity [Unknown]

NARRATIVE: CASE EVENT DATE: 200701
